FAERS Safety Report 19294746 (Version 1)
Quarter: 2021Q2

REPORT INFORMATION
  Report Type: Spontaneous
  Country: GB (occurrence: GB)
  Receive Date: 20210524
  Receipt Date: 20210524
  Transmission Date: 20210717
  Serious: Yes (Hospitalization, Other)
  Sender: FDA-Public Use
  Company Number: GB-BRISTOL-MYERS SQUIBB COMPANY-BMS-2021-049899

PATIENT
  Sex: Male

DRUGS (4)
  1. IPILIMUMAB [Suspect]
     Active Substance: IPILIMUMAB
     Indication: MALIGNANT MELANOMA
     Dosage: UNK
     Route: 065
     Dates: start: 201703
  2. NIVOLUMAB [Suspect]
     Active Substance: NIVOLUMAB
     Indication: MELANOMA RECURRENT
     Dosage: UNK
     Route: 065
  3. NIVOLUMAB [Suspect]
     Active Substance: NIVOLUMAB
     Indication: MALIGNANT MELANOMA
     Dosage: UNK
     Route: 065
     Dates: start: 201703
  4. IPILIMUMAB [Suspect]
     Active Substance: IPILIMUMAB
     Indication: MELANOMA RECURRENT
     Dosage: UNK
     Route: 065

REACTIONS (6)
  - Tremor [Unknown]
  - Headache [Unknown]
  - Adrenal disorder [Unknown]
  - Colitis [Unknown]
  - Hypothalamo-pituitary disorder [Unknown]
  - Cellulitis [Unknown]
